FAERS Safety Report 11233129 (Version 1)
Quarter: 2015Q3

REPORT INFORMATION
  Report Type: Report from Study
  Country: US (occurrence: US)
  Receive Date: 20150701
  Receipt Date: 20150701
  Transmission Date: 20151125
  Serious: Yes (Hospitalization, Other)
  Sender: FDA-Public Use
  Company Number: US-GILEAD-2015-0160589

PATIENT
  Age: 71 Year
  Sex: Female

DRUGS (2)
  1. AMBRISENTAN [Suspect]
     Active Substance: AMBRISENTAN
     Indication: PULMONARY ARTERIAL HYPERTENSION
     Dosage: 10 MG, QD
     Route: 065
     Dates: start: 20150609
  2. VENTAVIS [Concomitant]
     Active Substance: ILOPROST

REACTIONS (8)
  - Pulmonary arterial hypertension [Unknown]
  - Pneumonia [Unknown]
  - Cough [Unknown]
  - Dry mouth [Unknown]
  - Hypotension [Unknown]
  - Hypoxia [Unknown]
  - Pyrexia [Unknown]
  - Dyspnoea [Unknown]
